FAERS Safety Report 15320358 (Version 2)
Quarter: 2018Q3

REPORT INFORMATION
  Report Type: Spontaneous
  Country: CA (occurrence: CA)
  Receive Date: 20180827
  Receipt Date: 20180913
  Transmission Date: 20181010
  Serious: Yes (Other)
  Sender: FDA-Public Use
  Company Number: CA-TEVA-2018-CA-946545

PATIENT
  Age: 71 Year
  Sex: Male

DRUGS (2)
  1. TEVA?ETOPOSIDE [Suspect]
     Active Substance: ETOPOSIDE
     Indication: MALIGNANT NEOPLASM OF UNKNOWN PRIMARY SITE
     Dosage: 173 MILLIGRAM DAILY; 173 MG /DAY
     Dates: start: 20180815, end: 20180815
  2. CISPLATIN. [Concomitant]
     Active Substance: CISPLATIN
     Indication: PROPHYLAXIS
     Dosage: 43 MILLIGRAM DAILY; 43MG/DAY FOR 3 DAYS
     Dates: start: 20180815

REACTIONS (4)
  - Hypersensitivity [Recovered/Resolved]
  - Oxygen saturation decreased [Recovered/Resolved]
  - Erythema [Recovered/Resolved]
  - Product quality issue [Unknown]

NARRATIVE: CASE EVENT DATE: 20180815
